FAERS Safety Report 12156408 (Version 1)
Quarter: 2016Q1

REPORT INFORMATION
  Report Type: Spontaneous
  Country: US (occurrence: US)
  Receive Date: 20160307
  Receipt Date: 20160307
  Transmission Date: 20160526
  Serious: No
  Sender: FDA-Public Use
  Company Number: US-PFIZER INC-2016078843

PATIENT
  Age: 71 Year
  Sex: Female
  Weight: 56.25 kg

DRUGS (2)
  1. XANAX [Suspect]
     Active Substance: ALPRAZOLAM
     Indication: NERVOUSNESS
  2. XANAX [Suspect]
     Active Substance: ALPRAZOLAM
     Indication: TREMOR
     Dosage: HALF 0.25MG MORNING AND 2PM, WHOLE 0.25MG AT NIGHT
     Dates: start: 20160201

REACTIONS (3)
  - Dizziness [Recovered/Resolved]
  - Drug effect incomplete [Unknown]
  - Vision blurred [Recovered/Resolved]

NARRATIVE: CASE EVENT DATE: 20160201
